FAERS Safety Report 6892797-6 (Version None)
Quarter: 2010Q3

REPORT INFORMATION
  Report Type: 
  Country: None (occurrence: None)
  Receive Date: 20100731
  Receipt Date: 20080923
  Transmission Date: 20110219
  Serious: No
  Sender: FDA-Public Use
  Company Number: US-PFIZER INC-2008080439

PATIENT
  Sex: Female
  Weight: 75 kg

DRUGS (3)
  1. NORVASC [Suspect]
     Indication: HYPERTENSION
     Dates: start: 20030101
  2. ATENOLOL [Concomitant]
  3. ACTIVELLA [Concomitant]

REACTIONS (1)
  - VITAMIN B12 INCREASED [None]
